FAERS Safety Report 24827678 (Version 4)
Quarter: 2025Q2

REPORT INFORMATION
  Report Type: Report from Study
  Country: JP (occurrence: JP)
  Receive Date: 20250109
  Receipt Date: 20250529
  Transmission Date: 20250717
  Serious: Yes (Death, Disabling)
  Sender: SHIONOGI
  Company Number: JP-shionogi-202500000305

PATIENT
  Age: 66 Year
  Sex: Male
  Weight: 50 kg

DRUGS (10)
  1. CEFIDEROCOL [Suspect]
     Active Substance: CEFIDEROCOL
     Indication: Postoperative wound infection
     Route: 041
     Dates: start: 20241202, end: 20241211
  2. MEROPENEM [Concomitant]
     Active Substance: MEROPENEM
     Indication: Postoperative wound infection
     Route: 065
     Dates: start: 20241106, end: 20241202
  3. MINOCYCLINE HYDROCHLORIDE [Concomitant]
     Active Substance: MINOCYCLINE HYDROCHLORIDE
     Indication: Postoperative wound infection
     Route: 065
     Dates: start: 20241121, end: 20241202
  4. BISOPROLOL [Concomitant]
     Active Substance: BISOPROLOL
     Indication: Product used for unknown indication
     Route: 065
     Dates: start: 20241101, end: 20241222
  5. AMINO ACIDS, SOURCE UNSPECIFIED [Concomitant]
     Active Substance: AMINO ACIDS, SOURCE UNSPECIFIED
     Indication: Product used for unknown indication
     Route: 065
     Dates: start: 20241023, end: 20241222
  6. METRONIDAZOLE [Concomitant]
     Active Substance: METRONIDAZOLE
     Indication: Postoperative wound infection
     Route: 065
     Dates: start: 20241202, end: 20241211
  7. CIZANARINE [Concomitant]
     Indication: Prophylaxis
     Route: 065
     Dates: start: 20241023, end: 20241222
  8. KCL [Concomitant]
     Active Substance: POTASSIUM CHLORIDE
     Indication: Product used for unknown indication
     Route: 065
     Dates: start: 20241114, end: 20241222
  9. OMEPRAZOLE [Concomitant]
     Active Substance: OMEPRAZOLE
     Indication: Prophylaxis
     Route: 065
     Dates: start: 20241110, end: 20241222
  10. ZERBAXA [Concomitant]
     Active Substance: CEFTOLOZANE SULFATE\TAZOBACTAM SODIUM
     Indication: Postoperative wound infection
     Route: 065
     Dates: start: 20241211, end: 20241222

REACTIONS (2)
  - Hepatic failure [Fatal]
  - Renal impairment [Not Recovered/Not Resolved]

NARRATIVE: CASE EVENT DATE: 20241203
